FAERS Safety Report 24075109 (Version 2)
Quarter: 2024Q3

REPORT INFORMATION
  Report Type: Spontaneous
  Country: ES (occurrence: ES)
  Receive Date: 20240710
  Receipt Date: 20240711
  Transmission Date: 20241017
  Serious: Yes (Other)
  Sender: NOVARTIS
  Company Number: ES-002147023-NVSC2024ES140160

PATIENT
  Age: 77 Year
  Sex: Female

DRUGS (2)
  1. LUTATHERA [Suspect]
     Active Substance: LUTETIUM OXODOTREOTIDE LU-177
     Indication: Neuroendocrine tumour
     Dosage: 200 MCI (EVERY 8 WEEKS)
     Route: 042
     Dates: start: 20240126, end: 20240515
  2. METFORMIN [Concomitant]
     Active Substance: METFORMIN HYDROCHLORIDE
     Indication: Diabetes mellitus
     Dosage: UNK
     Route: 065

REACTIONS (6)
  - Neuroendocrine carcinoma metastatic [Not Recovered/Not Resolved]
  - Myelosuppression [Not Recovered/Not Resolved]
  - Thrombocytopenia [Unknown]
  - Therapeutic response decreased [Not Recovered/Not Resolved]
  - General physical health deterioration [Unknown]
  - Illness [Unknown]

NARRATIVE: CASE EVENT DATE: 20240611
